FAERS Safety Report 13395160 (Version 1)
Quarter: 2017Q2

REPORT INFORMATION
  Report Type: Spontaneous
  Country: CN (occurrence: CN)
  Receive Date: 20170403
  Receipt Date: 20170403
  Transmission Date: 20170830
  Serious: Yes (Other)
  Sender: FDA-Public Use
  Company Number: CN-ASTRAZENECA-2017SE33592

PATIENT
  Age: 29951 Day
  Sex: Female

DRUGS (4)
  1. TICAGRELOR [Suspect]
     Active Substance: TICAGRELOR
     Indication: PLATELET DISORDER
     Dosage: 180.0MG UNKNOWN
     Route: 048
     Dates: start: 20161023
  2. TICAGRELOR [Suspect]
     Active Substance: TICAGRELOR
     Indication: ACUTE CORONARY SYNDROME
     Dosage: 180.0MG UNKNOWN
     Route: 048
     Dates: start: 20161023
  3. TICAGRELOR [Suspect]
     Active Substance: TICAGRELOR
     Indication: PLATELET DISORDER
     Dosage: 90.0MG UNKNOWN
     Route: 048
     Dates: start: 20161023, end: 20161023
  4. TICAGRELOR [Suspect]
     Active Substance: TICAGRELOR
     Indication: ACUTE CORONARY SYNDROME
     Dosage: 90.0MG UNKNOWN
     Route: 048
     Dates: start: 20161023, end: 20161023

REACTIONS (5)
  - Respiratory depression [Recovered/Resolved]
  - Chest discomfort [Recovered/Resolved]
  - Dyspnoea [Recovered/Resolved]
  - Nausea [Recovered/Resolved]
  - Vomiting [Recovered/Resolved]

NARRATIVE: CASE EVENT DATE: 20161023
